FAERS Safety Report 5535123-7 (Version None)
Quarter: 2007Q4

REPORT INFORMATION
  Report Type: 
  Country: None (occurrence: None)
  Receive Date: 20071203
  Receipt Date: 20071120
  Transmission Date: 20080405
  Serious: Yes (Hospitalization)
  Sender: FDA-Public Use
  Company Number: 2007EU002401

PATIENT
  Age: 58 Year
  Sex: Female
  Weight: 63 kg

DRUGS (3)
  1. PROGRAF [Suspect]
     Indication: RENAL TRANSPLANT
     Dosage: 6 MG, UID/QD, UNKNOWN
  2. CORTISON (CORTISONE ACETATE) [Concomitant]
  3. ACE INHIBITOR NOS [Concomitant]

REACTIONS (1)
  - PYELONEPHRITIS [None]
